FAERS Safety Report 6645302-3 (Version None)
Quarter: 2010Q1

REPORT INFORMATION
  Report Type: 
  Country: None (occurrence: None)
  Receive Date: 20100322
  Receipt Date: 20090908
  Transmission Date: 20100710
  Serious: Yes (Hospitalization)
  Sender: FDA-Public Use
  Company Number: FR-SANOFI-AVENTIS-A01200909476

PATIENT
  Age: 48 Year
  Sex: Female

DRUGS (7)
  1. CHLOROQUINE PHOSPHATE [Suspect]
     Indication: CUTANEOUS LUPUS ERYTHEMATOSUS
     Route: 048
     Dates: end: 20000301
  2. CHLOROQUINE PHOSPHATE [Suspect]
     Indication: SJOGREN'S SYNDROME
     Route: 048
     Dates: end: 20000301
  3. CHLOROQUINE PHOSPHATE [Suspect]
     Route: 048
     Dates: start: 20001001
  4. CHLOROQUINE PHOSPHATE [Suspect]
     Route: 048
     Dates: start: 20001001
  5. CHLOROQUINE PHOSPHATE [Suspect]
     Route: 065
     Dates: start: 20040601
  6. CHLOROQUINE PHOSPHATE [Suspect]
     Route: 065
     Dates: start: 20040601
  7. ATENOLOL [Concomitant]
     Indication: PALPITATIONS
     Route: 048
     Dates: start: 20000101

REACTIONS (5)
  - ATRIOVENTRICULAR BLOCK COMPLETE [None]
  - DRUG LEVEL ABOVE THERAPEUTIC [None]
  - RETINOGRAM ABNORMAL [None]
  - SYNCOPE [None]
  - VISUAL FIELD DEFECT [None]
